FAERS Safety Report 7024837-8 (Version None)
Quarter: 2010Q4

REPORT INFORMATION
  Report Type: 
  Country: None (occurrence: None)
  Receive Date: 20101001
  Receipt Date: 20100923
  Transmission Date: 20110411
  Serious: Yes (Hospitalization)
  Sender: FDA-Public Use
  Company Number: US-BAYER-201020630BCC

PATIENT
  Age: 82 Year
  Sex: Male
  Weight: 77 kg

DRUGS (12)
  1. ALEVE (CAPLET) [Suspect]
     Indication: SPINAL COLUMN STENOSIS
     Route: 048
  2. ASPIRIN [Suspect]
     Indication: PRODUCT USED FOR UNKNOWN INDICATION
     Route: 048
  3. NITROGLYCERIN [Concomitant]
  4. NIASPAN [Concomitant]
  5. LIPITOR [Concomitant]
  6. CARVEDILOL [Concomitant]
  7. HYZAAR [Concomitant]
  8. METFORMIN HCL [Concomitant]
  9. ASCORBIC ACID [Concomitant]
  10. GINKGO [Concomitant]
  11. GLUCOSAMINE CHONDROITIN [Concomitant]
  12. XYZAL ALLERGY [Concomitant]

REACTIONS (3)
  - CAROTID SINUS SYNDROME [None]
  - FEELING ABNORMAL [None]
  - LOSS OF CONSCIOUSNESS [None]
